FAERS Safety Report 16197278 (Version 1)
Quarter: 2019Q2

REPORT INFORMATION
  Report Type: Spontaneous
  Country: US (occurrence: US)
  Receive Date: 20190413
  Receipt Date: 20190413
  Transmission Date: 20190711
  Serious: Yes (Other)
  Sender: FDA-Public Use
  Company Number: None

PATIENT
  Age: 43 Year
  Sex: Female
  Weight: 169.65 kg

DRUGS (1)
  1. ALBUTEROL SULFATE HFA INHALATION AEROSOL [Suspect]
     Active Substance: ALBUTEROL SULFATE
     Indication: ASTHMA EXERCISE INDUCED
     Dosage: ?          QUANTITY:2 PUFF(S);?
     Route: 055
     Dates: start: 20190412, end: 20190412

REACTIONS (11)
  - Upper-airway cough syndrome [None]
  - Lymphadenopathy [None]
  - Insomnia [None]
  - Cough [None]
  - Tremor [None]
  - Oropharyngeal pain [None]
  - Product substitution issue [None]
  - Headache [None]
  - Ear pain [None]
  - Insurance issue [None]
  - Chest pain [None]

NARRATIVE: CASE EVENT DATE: 20190412
